FAERS Safety Report 6833806-X (Version None)
Quarter: 2010Q3

REPORT INFORMATION
  Report Type: 
  Country: None (occurrence: None)
  Receive Date: 20100712
  Receipt Date: 20070403
  Transmission Date: 20110219
  Serious: No
  Sender: FDA-Public Use
  Company Number: US-PFIZER INC-2007027217

PATIENT
  Sex: Female

DRUGS (7)
  1. CHANTIX [Suspect]
     Indication: SMOKING CESSATION THERAPY
     Dates: start: 20070315
  2. DIGITEK [Concomitant]
  3. COZAAR [Concomitant]
  4. ALDACTONE [Concomitant]
  5. CELEBREX [Concomitant]
  6. COREG [Concomitant]
  7. ULTRAM [Concomitant]

REACTIONS (5)
  - ABNORMAL DREAMS [None]
  - FLATULENCE [None]
  - INSOMNIA [None]
  - NOCTURIA [None]
  - WEIGHT INCREASED [None]
